FAERS Safety Report 7524629-7 (Version None)
Quarter: 2011Q2

REPORT INFORMATION
  Report Type: 
  Country: None (occurrence: None)
  Receive Date: 20110525
  Receipt Date: 20110510
  Transmission Date: 20111010
  Serious: Yes (Hospitalization, Other)
  Sender: FDA-Public Use
  Company Number: 2011MA005772

PATIENT
  Age: 55 Year
  Sex: Male

DRUGS (1)
  1. FEVERALL [Suspect]
     Indication: POISONING DELIBERATE
     Dosage: 13.3 G, 1X, PO
     Route: 048

REACTIONS (5)
  - OVERDOSE [None]
  - POISONING DELIBERATE [None]
  - BLOOD PRESSURE INCREASED [None]
  - AGITATION [None]
  - SOMNOLENCE [None]
